FAERS Safety Report 22044728 (Version 1)
Quarter: 2023Q1

REPORT INFORMATION
  Report Type: Report from Study
  Country: US (occurrence: US)
  Receive Date: 20230228
  Receipt Date: 20230228
  Transmission Date: 20230417
  Serious: No
  Sender: FDA-Public Use
  Company Number: US-002147023-NVSC2023US045425

PATIENT
  Sex: Female

DRUGS (1)
  1. COSENTYX [Suspect]
     Active Substance: SECUKINUMAB
     Indication: Psoriatic arthropathy
     Dosage: UNK UNK, OTHER (WEEK 0, 1, 2, 3, 4 AND EVERY 4 WEEKS THEREAFTER) (TAKEN HER FIRST TWO LOADING DOSES)
     Route: 058

REACTIONS (1)
  - Thinking abnormal [Unknown]
